FAERS Safety Report 9961906 (Version 1)
Quarter: 2014Q1

REPORT INFORMATION
  Report Type: Spontaneous
  Country: US (occurrence: None)
  Receive Date: 20140304
  Receipt Date: 20140304
  Transmission Date: 20141002
  Serious: Yes (Hospitalization)
  Sender: FDA-Public Use
  Company Number: None

PATIENT
  Age: 67 Year
  Sex: Male
  Weight: 71.8 kg

DRUGS (2)
  1. ASPIRIN [Suspect]
     Indication: STENT PLACEMENT
     Route: 048
     Dates: start: 20101214, end: 20140118
  2. CLOPIDOGREL [Suspect]
     Indication: STENT PLACEMENT

REACTIONS (6)
  - Melaena [None]
  - Dizziness postural [None]
  - Upper gastrointestinal haemorrhage [None]
  - Gastrooesophageal reflux disease [None]
  - Hiatus hernia [None]
  - Anaemia [None]
